FAERS Safety Report 10583773 (Version 1)
Quarter: 2014Q4

REPORT INFORMATION
  Report Type: Spontaneous
  Country: US (occurrence: None)
  Receive Date: 20141112
  Receipt Date: 20141112
  Transmission Date: 20150529
  Serious: Yes (Other)
  Sender: FDA-Public Use
  Company Number: FK201404974

PATIENT
  Age: 55 Year
  Sex: Male

DRUGS (4)
  1. MESNA (MESNA) [Concomitant]
     Active Substance: MESNA
  2. IFOSFAMIDE (MANUFACTURER UNKNOWN) (IFOSFAMIDE) (IFOSFAMIDE) [Suspect]
     Active Substance: IFOSFAMIDE
     Indication: PERIPHERAL NERVE SHEATH TUMOUR MALIGNANT
  3. DACARBAZINE (DACARBAZINE) [Concomitant]
     Active Substance: DACARBAZINE
  4. DOXORUBICIN (DOXORUBICIN) [Concomitant]
     Active Substance: DOXORUBICIN

REACTIONS (6)
  - Metastases to bone [None]
  - Neurotoxicity [None]
  - Metastases to liver [None]
  - Spinal cord compression [None]
  - No therapeutic response [None]
  - Metastases to lung [None]
